FAERS Safety Report 10654249 (Version 1)
Quarter: 2014Q4

REPORT INFORMATION
  Report Type: Spontaneous
  Country: US (occurrence: None)
  Receive Date: 20141215
  Receipt Date: 20141215
  Transmission Date: 20150529
  Serious: Yes (Disabling)
  Sender: FDA-Public Use
  Company Number: None

PATIENT
  Age: 46 Year
  Sex: Male
  Weight: 79.38 kg

DRUGS (1)
  1. LIPITOR [Suspect]
     Active Substance: ATORVASTATIN CALCIUM
     Indication: BLOOD CHOLESTEROL INCREASED
     Dosage: 1  TAKEN BY MOUTH
     Route: 048
     Dates: start: 20121002, end: 20121209

REACTIONS (11)
  - Myalgia [None]
  - Rhinorrhoea [None]
  - Headache [None]
  - Amnesia [None]
  - Nerve injury [None]
  - Blood testosterone decreased [None]
  - Neuropathy peripheral [None]
  - Muscle spasms [None]
  - Pain [None]
  - Sleep disorder [None]
  - Hypothyroidism [None]

NARRATIVE: CASE EVENT DATE: 20121002
